FAERS Safety Report 23896810 (Version 1)
Quarter: 2024Q2

REPORT INFORMATION
  Report Type: Spontaneous
  Country: US (occurrence: None)
  Receive Date: 20240524
  Receipt Date: 20240524
  Transmission Date: 20240716
  Serious: Yes (Other)
  Sender: FDA-Public Use
  Company Number: None

PATIENT
  Age: 54 Year
  Sex: Male
  Weight: 150 kg

DRUGS (5)
  1. ABILIFY MAINTENA [Suspect]
     Active Substance: ARIPIPRAZOLE
     Indication: Bipolar disorder
     Dosage: 400 MG EVERY MONTH INTRAMUSCULAR?
     Route: 030
     Dates: start: 20240205, end: 20240524
  2. CABOTEGRAVIR [Concomitant]
     Active Substance: CABOTEGRAVIR
  3. BENZTROPINE [Suspect]
     Active Substance: BENZTROPINE
  4. LORAZEPAM [Concomitant]
  5. OZEMPIC [Concomitant]

REACTIONS (2)
  - Dysarthria [None]
  - Therapy change [None]

NARRATIVE: CASE EVENT DATE: 20240415
